FAERS Safety Report 8552463-8 (Version None)
Quarter: 2012Q3

REPORT INFORMATION
  Report Type: 
  Country: None (occurrence: None)
  Receive Date: 20120731
  Receipt Date: 20120720
  Transmission Date: 20120928
  Serious: Yes (Hospitalization)
  Sender: FDA-Public Use
  Company Number: US-BAYER-2012-035993

PATIENT
  Age: 19 Year
  Sex: Female
  Weight: 74.83 kg

DRUGS (6)
  1. PROTONIX [Concomitant]
  2. ALBUTEROL [Concomitant]
  3. IBUPROFEN [Concomitant]
  4. ZYRTEC [Concomitant]
  5. YASMIN [Suspect]
     Indication: CONTRACEPTION
     Dosage: UNK
     Dates: start: 20010101, end: 20030101
  6. YASMIN [Suspect]
     Indication: PREMENSTRUAL SYNDROME
     Dosage: UNK
     Dates: start: 20050225, end: 20050501

REACTIONS (11)
  - ABDOMINAL PAIN UPPER [None]
  - GASTROOESOPHAGEAL REFLUX DISEASE [None]
  - NAUSEA [None]
  - BILIARY COLIC [None]
  - CHOLECYSTITIS [None]
  - ABDOMINAL DISTENSION [None]
  - FLATULENCE [None]
  - VOMITING [None]
  - DIARRHOEA [None]
  - DISCOMFORT [None]
  - DYSPEPSIA [None]
